FAERS Safety Report 14873710 (Version 1)
Quarter: 2018Q2

REPORT INFORMATION
  Report Type: Report from Study
  Country: None (occurrence: US)
  Receive Date: 20180510
  Receipt Date: 20180510
  Transmission Date: 20180711
  Serious: Yes (Hospitalization)
  Sender: FDA-Public Use
  Company Number: US-ABBVIE-17K-163-2098625-00

PATIENT
  Sex: Female

DRUGS (1)
  1. HUMIRA [Suspect]
     Active Substance: ADALIMUMAB
     Indication: HIDRADENITIS
     Route: 058

REACTIONS (6)
  - Bulimia nervosa [Unknown]
  - Decreased appetite [Unknown]
  - Stress [Unknown]
  - Hidradenitis [Unknown]
  - Mental disorder [Unknown]
  - Depression [Unknown]

NARRATIVE: CASE EVENT DATE: 2018
